FAERS Safety Report 6882152-7 (Version None)
Quarter: 2010Q3

REPORT INFORMATION
  Report Type: 
  Country: None (occurrence: None)
  Receive Date: 20100702
  Receipt Date: 20100310
  Transmission Date: 20110219
  Serious: Yes (Other)
  Sender: FDA-Public Use
  Company Number: 2010021576

PATIENT
  Age: 42 Year
  Sex: Female
  Weight: 72.6 kg

DRUGS (1)
  1. SERTRALINE HCL (SERTRALINE HCL) FILM-COATED TABLET [Suspect]
     Dosage: 50MG, 1X/DAY, ORAL
     Route: 048
     Dates: start: 20100107, end: 20100127

REACTIONS (2)
  - HYPERSENSITIVITY [None]
  - RASH [None]
